FAERS Safety Report 7943524-2 (Version None)
Quarter: 2011Q4

REPORT INFORMATION
  Report Type: 
  Country: None (occurrence: None)
  Receive Date: 20111128
  Receipt Date: 20111118
  Transmission Date: 20120403
  Serious: Yes (Other)
  Sender: FDA-Public Use
  Company Number: US-BAYER-2011-078119

PATIENT
  Age: 37 Year
  Sex: Female
  Weight: 68.934 kg

DRUGS (12)
  1. YASMIN [Suspect]
     Indication: DYSMENORRHOEA
  2. PAXIL [Concomitant]
     Indication: DEPRESSION
  3. AMBIEN [Concomitant]
     Indication: INSOMNIA
     Dosage: UNK
     Dates: start: 20040101
  4. NEXIUM [Concomitant]
     Dosage: 40 MG, UNK
     Dates: start: 20070812, end: 20071105
  5. NASONEX [Concomitant]
     Dosage: UNK
     Dates: start: 20070821
  6. YASMIN [Suspect]
     Indication: CONTRACEPTION
     Dosage: UNK
     Dates: start: 20060208, end: 20090918
  7. DROSPIRENONE AND ETHINYL ESTRADIOL [Suspect]
     Indication: CONTRACEPTION
     Dosage: UNK
     Dates: start: 20080912, end: 20081113
  8. FLUOCINONIDE [Concomitant]
     Dosage: UNK
     Dates: start: 20070818
  9. XANAX [Concomitant]
     Indication: ANXIETY
     Dosage: UNK
     Dates: start: 19990101
  10. ALPRAZOLAM [Concomitant]
     Dosage: 1 MG, UNK
     Dates: start: 20070908
  11. PAXIL [Concomitant]
     Indication: ANXIETY
     Dosage: UNK
     Dates: start: 19990101
  12. PAROXETINE HCL [Concomitant]
     Dosage: UNK
     Dates: start: 20070821

REACTIONS (3)
  - GALLBLADDER DISORDER [None]
  - INJURY [None]
  - CHOLECYSTITIS CHRONIC [None]
